FAERS Safety Report 15385421 (Version 1)
Quarter: 2018Q3

REPORT INFORMATION
  Report Type: Spontaneous
  Country: CO (occurrence: CO)
  Receive Date: 20180914
  Receipt Date: 20180914
  Transmission Date: 20181010
  Serious: Yes (Death, Other)
  Sender: FDA-Public Use
  Company Number: PHHY2018CO098860

PATIENT
  Age: 35 Year
  Sex: Male

DRUGS (1)
  1. VOTRIENT [Suspect]
     Active Substance: PAZOPANIB HYDROCHLORIDE
     Indication: ANGIOSARCOMA METASTATIC
     Route: 065

REACTIONS (3)
  - Death [Fatal]
  - Angiosarcoma metastatic [Unknown]
  - Malignant neoplasm progression [Unknown]
